FAERS Safety Report 8858737 (Version 1)
Quarter: 2012Q4

REPORT INFORMATION
  Report Type: 
  Country: IT (occurrence: IT)
  Receive Date: 20121024
  Receipt Date: 20121024
  Transmission Date: 20130627
  Serious: Yes (Hospitalization)
  Sender: FDA-Public Use
  Company Number: IT-009507513-1210ITA009882

PATIENT
  Age: 42 Year
  Sex: Female
  Weight: 75 kg

DRUGS (2)
  1. SITAGLIPTIN PHOSPHATE [Suspect]
     Indication: DIABETES MELLITUS
     Dosage: 100 mg, daily
     Route: 048
     Dates: start: 20100101, end: 20121004
  2. METFORMIN [Concomitant]
     Dosage: 1000 mg,
     Route: 048

REACTIONS (3)
  - Amylase increased [Recovering/Resolving]
  - Lipase increased [Recovering/Resolving]
  - Abdominal pain upper [Recovering/Resolving]
